FAERS Safety Report 7402536-8 (Version None)
Quarter: 2011Q2

REPORT INFORMATION
  Report Type: 
  Country: None (occurrence: None)
  Receive Date: 20110408
  Receipt Date: 20110329
  Transmission Date: 20111010
  Serious: Yes (Other)
  Sender: FDA-Public Use
  Company Number: PHHY2011AT12713

PATIENT
  Sex: Male

DRUGS (4)
  1. MADOPAR [Concomitant]
     Dosage: 3/4-1/2-3/4-1/2
  2. RISPERIDONE [Concomitant]
     Dosage: 0.5 DF, UNK
  3. CYMBALTA [Concomitant]
     Dosage: 60 MG, UNK
  4. EXELON [Suspect]
     Dosage: UNK UKN, UNK
     Route: 062

REACTIONS (5)
  - BLISTER [None]
  - DERMATITIS BULLOUS [None]
  - APPLICATION SITE PAPULES [None]
  - SKIN EXFOLIATION [None]
  - APPLICATION SITE ERYTHEMA [None]
